FAERS Safety Report 12345762 (Version 3)
Quarter: 2018Q1

REPORT INFORMATION
  Report Type: Spontaneous
  Country: US (occurrence: US)
  Receive Date: 20160509
  Receipt Date: 20180129
  Transmission Date: 20180508
  Serious: Yes (Other)
  Sender: FDA-Public Use
  Company Number: US-BRISTOL-MYERS SQUIBB COMPANY-BMS-2016-034062

PATIENT
  Sex: Male

DRUGS (1)
  1. KENALOG-40 [Suspect]
     Active Substance: TRIAMCINOLONE ACETONIDE
     Indication: RASH
     Dosage: 80 UNK, UNK
     Route: 065

REACTIONS (9)
  - Lymphoma [Unknown]
  - Sciatica [Not Recovered/Not Resolved]
  - Neuropathy peripheral [Unknown]
  - Injection site reaction [Unknown]
  - Exostosis [Unknown]
  - Pain in extremity [Unknown]
  - Neck pain [Unknown]
  - Tendonitis [Unknown]
  - Intervertebral disc protrusion [Unknown]
